FAERS Safety Report 25711761 (Version 1)
Quarter: 2025Q3

REPORT INFORMATION
  Report Type: Spontaneous
  Country: US (occurrence: US)
  Receive Date: 20250821
  Receipt Date: 20250821
  Transmission Date: 20251021
  Serious: Yes (Hospitalization)
  Sender: ELI LILLY AND COMPANY
  Company Number: US-ELI_LILLY_AND_COMPANY-US202508017491

PATIENT

DRUGS (1)
  1. BASAGLAR [Suspect]
     Active Substance: INSULIN GLARGINE
     Indication: Product used for unknown indication

REACTIONS (6)
  - Blood pressure decreased [Unknown]
  - Loss of consciousness [Unknown]
  - Blood glucose decreased [Recovered/Resolved]
  - Injection site induration [Unknown]
  - Injection site haemorrhage [Unknown]
  - Injection site pain [Unknown]
